FAERS Safety Report 6181203-5 (Version None)
Quarter: 2009Q2

REPORT INFORMATION
  Report Type: 
  Country: None (occurrence: None)
  Receive Date: 20090504
  Receipt Date: 20090424
  Transmission Date: 20091009
  Serious: Yes (Death, Other)
  Sender: FDA-Public Use
  Company Number: 2009SP006644

PATIENT
  Age: 63 Year
  Sex: Female

DRUGS (3)
  1. TEMODAL [Suspect]
     Indication: METASTATIC MALIGNANT MELANOMA
     Dosage: 200, PO
     Route: 048
     Dates: start: 20080714, end: 20090312
  2. AVASTIN [Suspect]
     Indication: METASTATIC MALIGNANT MELANOMA
     Dosage: 500; IV
     Route: 042
     Dates: start: 20080714, end: 20090312
  3. ASPIRIN [Concomitant]

REACTIONS (2)
  - GENERAL PHYSICAL HEALTH DETERIORATION [None]
  - GINGIVAL BLEEDING [None]
